FAERS Safety Report 10815047 (Version 2)
Quarter: 2015Q1

REPORT INFORMATION
  Report Type: Spontaneous
  Country: GR (occurrence: GR)
  Receive Date: 20150218
  Receipt Date: 20150227
  Transmission Date: 20150721
  Serious: Yes (Other)
  Sender: FDA-Public Use
  Company Number: GR-009507513-1502GRC007098

PATIENT
  Sex: Male

DRUGS (1)
  1. BCG LIVE [Suspect]
     Active Substance: BACILLUS CALMETTE-GUERIN SUBSTRAIN TICE LIVE ANTIGEN
     Indication: BLADDER NEOPLASM
     Route: 043

REACTIONS (2)
  - Metastases to lung [Unknown]
  - Metastases to lymph nodes [Unknown]
